FAERS Safety Report 8562960 (Version 3)
Quarter: 2012Q4

REPORT INFORMATION
  Report Type: Report from Study
  Country: US (occurrence: US)
  Receive Date: 20120515
  Receipt Date: 20121105
  Transmission Date: 20130627
  Serious: Yes (Hospitalization, Other)
  Sender: FDA-Public Use
  Company Number: US-ABBOTT-12P-163-0933271-00

PATIENT
  Age: 21 Year
  Sex: Female

DRUGS (8)
  1. HUMIRA 40 MG/0.8 ML PEN [Suspect]
     Indication: CROHN^S DISEASE
     Dosage: Loading dose
     Dates: start: 20120424, end: 20120424
  2. PREDNISONE [Concomitant]
     Indication: CROHN^S DISEASE
     Route: 048
  3. ZYRTEC [Concomitant]
     Indication: HYPERSENSITIVITY
     Route: 048
  4. PREVACID [Concomitant]
     Indication: GASTROOESOPHAGEAL REFLUX DISEASE
     Dosage: 30 solutabs daily
  5. ZANTAC [Concomitant]
     Indication: GASTROOESOPHAGEAL REFLUX DISEASE
     Route: 048
  6. VITAMIN D [Concomitant]
     Indication: PRODUCT USED FOR UNKNOWN INDICATION
  7. SINGULAIR [Concomitant]
     Indication: HYPERSENSITIVITY
     Route: 048
  8. FOLIC ACID [Concomitant]
     Indication: CROHN^S DISEASE

REACTIONS (7)
  - Gait disturbance [Recovered/Resolved]
  - Arthralgia [Recovered/Resolved]
  - Arthritis [Recovered/Resolved]
  - Costochondritis [Recovered/Resolved]
  - Joint swelling [Recovered/Resolved]
  - Joint stiffness [Recovered/Resolved]
  - Muscular weakness [Recovered/Resolved]
